FAERS Safety Report 5859267-5 (Version None)
Quarter: 2008Q3

REPORT INFORMATION
  Report Type: 
  Country: None (occurrence: None)
  Receive Date: 20080825
  Receipt Date: 20080825
  Transmission Date: 20090109
  Serious: Yes (Hospitalization)
  Sender: FDA-Public Use
  Company Number: None

PATIENT
  Sex: Male
  Weight: 75 kg

DRUGS (13)
  1. GEMCITABINE [Suspect]
     Indication: HEAD AND NECK CANCER
     Dosage: 3000MG/M2, Q 2 WKS, IV
     Route: 042
     Dates: start: 20071123, end: 20080222
  2. DOCETAXEL [Suspect]
     Indication: HEAD AND NECK CANCER
     Dosage: 60MG/M2, Q 2 WKS, IV
     Route: 042
     Dates: start: 20071123, end: 20080222
  3. BACTRIM [Concomitant]
  4. LORTAB [Concomitant]
  5. NIACIN [Concomitant]
  6. FLOMAX [Concomitant]
  7. FINASTERIDE [Concomitant]
  8. CALCITRIOL [Concomitant]
  9. SYNTHROID [Concomitant]
  10. GEMFIBROZIL [Concomitant]
  11. PROTONIX [Concomitant]
  12. CALCIUM [Concomitant]
  13. DUONEB [Concomitant]

REACTIONS (1)
  - DYSPNOEA [None]
